FAERS Safety Report 9030786 (Version 1)
Quarter: 2013Q1

REPORT INFORMATION
  Report Type: Spontaneous
  Country: CY (occurrence: CY)
  Receive Date: 20130123
  Receipt Date: 20130123
  Transmission Date: 20140127
  Serious: Yes (Other)
  Sender: FDA-Public Use
  Company Number: PHHY2013CY005845

PATIENT
  Age: 62 Year
  Sex: Male

DRUGS (2)
  1. EXFORGE [Suspect]
     Dosage: UNK UKN, UNK
     Route: 048
  2. CONCOR [Concomitant]

REACTIONS (1)
  - Peyronie^s disease [Unknown]
